FAERS Safety Report 9112542 (Version 1)
Quarter: 2013Q1

REPORT INFORMATION
  Report Type: Spontaneous
  Country: GB (occurrence: GB)
  Receive Date: 20130208
  Receipt Date: 20130208
  Transmission Date: 20140127
  Serious: Yes (Other)
  Sender: FDA-Public Use
  Company Number: GB-TARO-2013P1001895

PATIENT
  Age: 77 Year
  Sex: Male

DRUGS (4)
  1. WARFARIN [Suspect]
  2. ALFUZOSIN [Suspect]
  3. CO-PROXAMOL [Suspect]
     Indication: PAIN
  4. OFLOXACIN [Suspect]
     Indication: CELLULITIS
     Dates: start: 201211, end: 201212

REACTIONS (7)
  - Tendon pain [Not Recovered/Not Resolved]
  - Dyspnoea [Not Recovered/Not Resolved]
  - Excoriation [Not Recovered/Not Resolved]
  - Petechiae [Not Recovered/Not Resolved]
  - Erythema [Not Recovered/Not Resolved]
  - Dysgeusia [Not Recovered/Not Resolved]
  - Tendonitis [Not Recovered/Not Resolved]
